FAERS Safety Report 7656261-9 (Version None)
Quarter: 2011Q3

REPORT INFORMATION
  Report Type: 
  Country: None (occurrence: None)
  Receive Date: 20110804
  Receipt Date: 20110726
  Transmission Date: 20111222
  Serious: Yes (Hospitalization)
  Sender: FDA-Public Use
  Company Number: MX-ELI_LILLY_AND_COMPANY-MX201107000662

PATIENT
  Age: 42 Year
  Sex: Male

DRUGS (3)
  1. BYETTA [Suspect]
     Indication: TYPE 2 DIABETES MELLITUS
     Dosage: 10 UG, BID
     Dates: start: 20110526, end: 20110620
  2. BYETTA [Suspect]
     Dosage: UNK, UNKNOWN
     Dates: start: 20110701
  3. METFORMIN HCL [Concomitant]
     Dosage: UNK

REACTIONS (1)
  - WOUND ABSCESS [None]
